FAERS Safety Report 6791696-8 (Version None)
Quarter: 2010Q2

REPORT INFORMATION
  Report Type: 
  Country: None (occurrence: None)
  Receive Date: 20100624
  Receipt Date: 20100622
  Transmission Date: 20101027
  Serious: Yes (Hospitalization)
  Sender: FDA-Public Use
  Company Number: US-GILEAD-2010-0029977

PATIENT
  Sex: Female

DRUGS (18)
  1. LETAIRIS [Suspect]
     Indication: PULMONARY ARTERIAL HYPERTENSION
     Route: 048
     Dates: start: 20080103
  2. IRON DEXTRAN [Concomitant]
  3. PLAVIX [Concomitant]
  4. TYLENOL [Concomitant]
  5. COLACE [Concomitant]
  6. ASPIRIN [Concomitant]
  7. SPIRIVA [Concomitant]
  8. ALLOPURINOL [Concomitant]
  9. KLOR-CON [Concomitant]
  10. TOPROL-XL [Concomitant]
  11. PROTONIX [Concomitant]
  12. MEDROL [Concomitant]
  13. AMBIEN CR [Concomitant]
  14. TORSEMIDE [Concomitant]
  15. CLONAZEPAM [Concomitant]
  16. ISOSORBIDE MONO [Concomitant]
  17. ADVAIR DISKUS 100/50 [Concomitant]
  18. LEVOTHYROXINE SODIUM [Concomitant]

REACTIONS (1)
  - HEART RATE DECREASED [None]
